FAERS Safety Report 10467663 (Version 4)
Quarter: 2015Q2

REPORT INFORMATION
  Report Type: Spontaneous
  Country: US (occurrence: US)
  Receive Date: 20140922
  Receipt Date: 20150520
  Transmission Date: 20150821
  Serious: Yes (Other)
  Sender: FDA-Public Use
  Company Number: US-GLAXOSMITHKLINE-A1090212A

PATIENT
  Sex: Female

DRUGS (11)
  1. ANORO ELLIPTA [Suspect]
     Active Substance: UMECLIDINIUM BROMIDE\VILANTEROL TRIFENATATE
     Indication: CHRONIC OBSTRUCTIVE PULMONARY DISEASE
     Dosage: 1 PUFF(S), QD
     Route: 055
     Dates: start: 201407
  2. SIMVASTATIN. [Concomitant]
     Active Substance: SIMVASTATIN
  3. METOPROLOL [Concomitant]
     Active Substance: METOPROLOL
  4. PAROXETINE [Concomitant]
     Active Substance: PAROXETINE\PAROXETINE HYDROCHLORIDE
  5. CLONIDINE. [Concomitant]
     Active Substance: CLONIDINE
  6. POTASSIUM [Concomitant]
     Active Substance: POTASSIUM
  7. FUROSEMIDE. [Concomitant]
     Active Substance: FUROSEMIDE
  8. ADVAIR DISKUS [Suspect]
     Active Substance: FLUTICASONE PROPIONATE\SALMETEROL XINAFOATE
     Indication: ILL-DEFINED DISORDER
     Dosage: 100/50 MCG
     Route: 055
     Dates: start: 20110101
  9. LISINOPRIL. [Concomitant]
     Active Substance: LISINOPRIL
  10. ANORO ELLIPTA [Suspect]
     Active Substance: UMECLIDINIUM BROMIDE\VILANTEROL TRIFENATATE
     Dosage: UNK, PRN
     Route: 055
  11. ANORO ELLIPTA [Suspect]
     Active Substance: UMECLIDINIUM BROMIDE\VILANTEROL TRIFENATATE
     Dosage: UNK

REACTIONS (11)
  - Visual acuity reduced [Not Recovered/Not Resolved]
  - Pelvic fracture [Unknown]
  - Hip fracture [Unknown]
  - Cataract [Not Recovered/Not Resolved]
  - Mental impairment [Not Recovered/Not Resolved]
  - Chest pain [Unknown]
  - Vitreous floaters [Not Recovered/Not Resolved]
  - Malaise [Unknown]
  - Osteoporosis [Unknown]
  - Inappropriate schedule of drug administration [Unknown]
  - Therapeutic response decreased [Unknown]

NARRATIVE: CASE EVENT DATE: 2013
